FAERS Safety Report 10422521 (Version 2)
Quarter: 2014Q4

REPORT INFORMATION
  Report Type: Spontaneous
  Country: JP (occurrence: JP)
  Receive Date: 20140901
  Receipt Date: 20141201
  Transmission Date: 20150528
  Serious: Yes (Life-Threatening)
  Sender: FDA-Public Use
  Company Number: JP-SA-2014SA114967

PATIENT
  Age: 73 Year
  Sex: Male
  Weight: 49 kg

DRUGS (10)
  1. 5-FU [Suspect]
     Active Substance: FLUOROURACIL
     Indication: COLON CANCER
     Route: 041
     Dates: start: 20140814, end: 20140814
  2. CALCIUM LEVOFOLINATE [Concomitant]
     Active Substance: LEVOLEUCOVORIN CALCIUM
     Dates: start: 20140814, end: 20140814
  3. GRANISETRON [Concomitant]
     Active Substance: GRANISETRON
     Dates: start: 20140814, end: 20140814
  4. SUREPOST [Concomitant]
     Active Substance: REPAGLINIDE
  5. ELPLAT [Suspect]
     Active Substance: OXALIPLATIN
     Indication: COLON CANCER
     Route: 041
     Dates: start: 20140814, end: 20140814
  6. 5-FU [Suspect]
     Active Substance: FLUOROURACIL
     Indication: COLON CANCER
     Route: 040
     Dates: start: 20140814, end: 20140814
  7. TRAZENTA [Concomitant]
     Active Substance: LINAGLIPTIN
  8. APIDRA [Concomitant]
     Active Substance: INSULIN GLULISINE
  9. DEXART [Concomitant]
     Active Substance: DEXAMETHASONE SODIUM PHOSPHATE
     Dates: start: 20140814, end: 20140814
  10. ADETPHOS [Concomitant]
     Active Substance: ADENOSINE TRIPHOSPHATE
     Dates: start: 20140817, end: 20140817

REACTIONS (2)
  - Supraventricular tachycardia [Recovered/Resolved]
  - Neutrophil count decreased [Unknown]

NARRATIVE: CASE EVENT DATE: 20140817
